FAERS Safety Report 10055720 (Version 1)
Quarter: 2014Q2

REPORT INFORMATION
  Report Type: Spontaneous
  Country: US (occurrence: None)
  Receive Date: 20140402
  Receipt Date: 20140402
  Transmission Date: 20141212
  Serious: Yes (Disabling)
  Sender: FDA-Public Use
  Company Number: None

PATIENT
  Age: 49 Year
  Sex: Female
  Weight: 54.43 kg

DRUGS (1)
  1. IMIQUIMOD [Suspect]
     Indication: BASAL CELL CARCINOMA
     Dosage: ONCE DAILY, APPLIED TO A SURFACE, USUALLY THE SKIN
     Route: 061
     Dates: start: 20140224, end: 20140324

REACTIONS (16)
  - Application site vesicles [None]
  - Application site erythema [None]
  - Malaise [None]
  - Pyrexia [None]
  - Back pain [None]
  - Nausea [None]
  - Diarrhoea [None]
  - Decreased appetite [None]
  - Palpitations [None]
  - Migraine [None]
  - Lymphadenopathy [None]
  - Lymphadenopathy [None]
  - Hypertension [None]
  - Skin lesion [None]
  - Skin ulcer [None]
  - Erythema multiforme [None]
